FAERS Safety Report 8313903-2 (Version None)
Quarter: 2012Q2

REPORT INFORMATION
  Report Type: 
  Country: None (occurrence: None)
  Receive Date: 20120426
  Receipt Date: 20120426
  Transmission Date: 20120825
  Serious: Yes (Life-Threatening, Hospitalization)
  Sender: FDA-Public Use
  Company Number: None

PATIENT
  Age: 49 Year
  Sex: Male
  Weight: 83 kg

DRUGS (1)
  1. BACTRIM [Suspect]
     Indication: ARTHROPOD BITE
     Dosage: UNKNOWN
     Route: 048
     Dates: start: 20120130, end: 20120202

REACTIONS (1)
  - ANAPHYLACTIC REACTION [None]
